FAERS Safety Report 25763913 (Version 1)
Quarter: 2025Q3

REPORT INFORMATION
  Report Type: Spontaneous
  Country: US (occurrence: US)
  Receive Date: 20250905
  Receipt Date: 20250905
  Transmission Date: 20251021
  Serious: No
  Sender: DOMPE FARMACEUTICI
  Company Number: US-FARMAPROD-202411-3905

PATIENT
  Sex: Female

DRUGS (18)
  1. OXERVATE [Suspect]
     Active Substance: CENEGERMIN-BKBJ
     Indication: Neurotrophic keratopathy
     Route: 047
     Dates: start: 20241104
  2. MIEBO [Concomitant]
     Active Substance: PERFLUOROHEXYLOCTANE
  3. REFRESH P.M. [Concomitant]
     Active Substance: MINERAL OIL\PETROLATUM
  4. REWETTING DROPS [Concomitant]
  5. VEVYE [Concomitant]
     Active Substance: CYCLOSPORINE
  6. XOLAIR [Concomitant]
     Active Substance: OMALIZUMAB
  7. VITAMINS [Concomitant]
     Active Substance: VITAMINS
  8. XOPENEX HFA [Concomitant]
     Active Substance: LEVALBUTEROL TARTRATE
  9. ZOVIA 1-35 [Concomitant]
  10. SPIRIVA RESPIMAT [Concomitant]
     Active Substance: TIOTROPIUM BROMIDE
  11. MONTELUKAST SODIUM [Concomitant]
     Active Substance: MONTELUKAST SODIUM
  12. ASMANEX HFA [Concomitant]
     Active Substance: MOMETASONE FUROATE
  13. PILOCARPINE HYDROCHLORIDE [Concomitant]
     Active Substance: PILOCARPINE HYDROCHLORIDE
  14. RESTASIS [Concomitant]
     Active Substance: CYCLOSPORINE
  15. CORLANOR [Concomitant]
     Active Substance: IVABRADINE HYDROCHLORIDE
  16. LYRICA [Concomitant]
     Active Substance: PREGABALIN
  17. METHENAMINE HIPPURATE [Concomitant]
     Active Substance: METHENAMINE HIPPURATE
  18. PLAQUENIL [Concomitant]
     Active Substance: HYDROXYCHLOROQUINE SULFATE

REACTIONS (1)
  - Eye pain [Unknown]
